FAERS Safety Report 5241841-0 (Version None)
Quarter: 2007Q1

REPORT INFORMATION
  Report Type: 
  Country: None (occurrence: None)
  Receive Date: 20061201
  Receipt Date: 20060801
  Transmission Date: 20070707
  Serious: No
  Sender: FDA-Public Use
  Company Number: 2006PV018619

PATIENT
  Age: 57 Year
  Sex: Male
  Weight: 170.0989 kg

DRUGS (11)
  1. BYETTA [Suspect]
     Indication: DIABETES MELLITUS NON-INSULIN-DEPENDENT
     Dosage: 5 MCG;BID; SC
     Route: 058
     Dates: start: 20060701
  2. BYETTA [Suspect]
  3. AVANDIA [Concomitant]
  4. METFORMIN HCL [Concomitant]
  5. NOVOLIN R [Concomitant]
  6. CRANBERRY SUPPLEMENT [Concomitant]
  7. FLOMAX [Concomitant]
  8. AVANDIA [Concomitant]
  9. (DECAMET.DITHIO) BIS (MET.PYRIDIN.) DITOSILATE [Concomitant]
  10. IBUPROFEN [Concomitant]
  11. GLUCOPHAGE [Concomitant]

REACTIONS (3)
  - BLOOD GLUCOSE DECREASED [None]
  - DECREASED APPETITE [None]
  - WEIGHT DECREASED [None]
